FAERS Safety Report 14214406 (Version 3)
Quarter: 2018Q1

REPORT INFORMATION
  Report Type: Spontaneous
  Country: US (occurrence: US)
  Receive Date: 20171122
  Receipt Date: 20180326
  Transmission Date: 20180508
  Serious: No
  Sender: FDA-Public Use
  Company Number: US-PFIZER INC-2017498989

PATIENT
  Age: 55 Year
  Sex: Female
  Weight: 58 kg

DRUGS (18)
  1. IBRANCE [Suspect]
     Active Substance: PALBOCICLIB
     Indication: BREAST CANCER METASTATIC
     Dosage: 125 MG, 1X/DAY (ONCE A DAY FOR 21 DAYS)
     Route: 048
  2. DULERA [Concomitant]
     Active Substance: FORMOTEROL FUMARATE DIHYDRATE\MOMETASONE FUROATE
     Indication: ASTHMA
     Dosage: UNK, 1X/DAY (1 PUFF)
     Route: 055
  3. LETROZOLE. [Concomitant]
     Active Substance: LETROZOLE
     Dosage: 2.5 MG, 1X/DAY
     Route: 048
     Dates: start: 201701
  4. LETROZOLE. [Concomitant]
     Active Substance: LETROZOLE
     Indication: HORMONE LEVEL ABNORMAL
     Dosage: 0.5 MG, UNK
     Route: 048
     Dates: start: 2016, end: 2016
  5. LORAZEPAM. [Concomitant]
     Active Substance: LORAZEPAM
     Indication: NAUSEA
  6. BIOTIN [Concomitant]
     Active Substance: BIOTIN
     Indication: ALOPECIA
     Dosage: 5000 UG, 1X/DAY
     Route: 048
  7. IBRANCE [Suspect]
     Active Substance: PALBOCICLIB
     Dosage: 125 MG, CYCLIC (FOR 21 DAYS THEN 7 DAYS OFF)
     Route: 048
     Dates: start: 2016
  8. LEVOTHYROXINE. [Concomitant]
     Active Substance: LEVOTHYROXINE
     Indication: THYROID DISORDER
     Dosage: 75 UG, 1X/DAY
     Route: 048
  9. PROAIR HFA [Concomitant]
     Active Substance: ALBUTEROL SULFATE
     Indication: ASTHMA
     Dosage: 90 UG, AS NEEDED (1-2 PUFFS)
     Route: 055
  10. DRONABINOL. [Concomitant]
     Active Substance: DRONABINOL
     Indication: WEIGHT ABNORMAL
  11. LORAZEPAM. [Concomitant]
     Active Substance: LORAZEPAM
     Indication: ANXIETY
     Dosage: 0.5 MG, AS NEEDED (TWICE A DAY)
     Route: 048
     Dates: start: 201510
  12. MARINOL (ALLOPURINOL) [Concomitant]
     Active Substance: ALLOPURINOL
     Indication: NAUSEA
  13. IBRANCE [Suspect]
     Active Substance: PALBOCICLIB
     Dosage: 125 MG, CYCLIC (DAILY FOR 21 DAYS ON AND 7 DAYS OFF)
     Route: 048
     Dates: start: 201701
  14. LETROZOLE. [Concomitant]
     Active Substance: LETROZOLE
     Indication: BREAST CANCER METASTATIC
     Dosage: 2.5 MG, 1X/DAY
     Route: 048
     Dates: start: 2016
  15. BIOTIN [Concomitant]
     Active Substance: BIOTIN
     Indication: NAIL DISORDER
     Dosage: 10000 UG, 1X/DAY
     Route: 048
  16. MARINOL (ALLOPURINOL) [Concomitant]
     Active Substance: ALLOPURINOL
     Indication: DECREASED APPETITE
     Dosage: 5 MG, 1X/DAY
     Route: 048
  17. DRONABINOL. [Concomitant]
     Active Substance: DRONABINOL
     Indication: NAUSEA
     Dosage: 2.5 MG, 1X/DAY (ONLY TAKE ONE AT NIGHT)
     Route: 048
     Dates: start: 2017
  18. DRONABINOL. [Concomitant]
     Active Substance: DRONABINOL
     Indication: APPETITE DISORDER

REACTIONS (13)
  - Onychoclasis [Not Recovered/Not Resolved]
  - Platelet count decreased [Unknown]
  - Dyspepsia [Unknown]
  - Memory impairment [Not Recovered/Not Resolved]
  - Nausea [Not Recovered/Not Resolved]
  - Condition aggravated [Not Recovered/Not Resolved]
  - Red blood cell count decreased [Unknown]
  - Headache [Not Recovered/Not Resolved]
  - Asthenia [Unknown]
  - White blood cell count decreased [Unknown]
  - Protein total decreased [Unknown]
  - Hyperphagia [Not Recovered/Not Resolved]
  - Diarrhoea [Not Recovered/Not Resolved]

NARRATIVE: CASE EVENT DATE: 2016
